FAERS Safety Report 18964562 (Version 1)
Quarter: 2021Q1

REPORT INFORMATION
  Report Type: Spontaneous
  Country: US (occurrence: US)
  Receive Date: 20210303
  Receipt Date: 20210303
  Transmission Date: 20210420
  Serious: No
  Sender: FDA-Public Use
  Company Number: US-AMNEAL PHARMACEUTICALS-2020-AMRX-03758

PATIENT
  Age: 79 Year
  Sex: Female

DRUGS (4)
  1. AZILECT [Concomitant]
     Active Substance: RASAGILINE MESYLATE
     Indication: PRODUCT USED FOR UNKNOWN INDICATION
     Dosage: 1 MILLIGRAM, QD
     Route: 065
  2. RYTARY [Suspect]
     Active Substance: CARBIDOPA\LEVODOPA
     Indication: PRODUCT USED FOR UNKNOWN INDICATION
     Dosage: 10 CAPSULES, DAILY (1 PILL AT 6AM, 3 PILLS AT 10AM, 3 PILLS AT 3PM AND 3 PILLS AT 10PM)
     Route: 065
     Dates: end: 202011
  3. RYTARY [Suspect]
     Active Substance: CARBIDOPA\LEVODOPA
     Dosage: UNK, UNK
     Route: 065
     Dates: start: 202011
  4. INBRIJA [Suspect]
     Active Substance: LEVODOPA
     Indication: PARKINSON^S DISEASE
     Dosage: 84 MILLIGRAM, AS NEEDED NOT TO EXCEED 5 DOSES PER DAY
     Dates: start: 20201106

REACTIONS (4)
  - Poor quality sleep [Unknown]
  - Freezing phenomenon [Unknown]
  - Dyskinesia [Recovering/Resolving]
  - Therapeutic response shortened [Unknown]

NARRATIVE: CASE EVENT DATE: 20201112
